FAERS Safety Report 6527166-1 (Version None)
Quarter: 2010Q1

REPORT INFORMATION
  Report Type: 
  Country: None (occurrence: None)
  Receive Date: 20100105
  Receipt Date: 20100104
  Transmission Date: 20100710
  Serious: Yes (Other)
  Sender: FDA-Public Use
  Company Number: A0837473A

PATIENT
  Age: 69 Year
  Sex: Female

DRUGS (3)
  1. ZANTAC [Suspect]
     Route: 065
  2. ACIPHEX [Suspect]
     Route: 065
  3. ACTONEL [Suspect]

REACTIONS (3)
  - ANAEMIA [None]
  - BLOOD CALCIUM DECREASED [None]
  - PALPITATIONS [None]
